FAERS Safety Report 7441758-7 (Version None)
Quarter: 2011Q2

REPORT INFORMATION
  Report Type: 
  Country: None (occurrence: None)
  Receive Date: 20110428
  Receipt Date: 20110421
  Transmission Date: 20111010
  Serious: Yes (Other)
  Sender: FDA-Public Use
  Company Number: CA-BRISTOL-MYERS SQUIBB COMPANY-13959267

PATIENT
  Age: 59 Year
  Sex: Female

DRUGS (29)
  1. VALIUM [Concomitant]
  2. ORACORT [Concomitant]
  3. ORENCIA [Suspect]
     Indication: RHEUMATOID ARTHRITIS
     Dosage: 13,27JUN,4OCT,1,29NOV07,3,31JAN,1,27MAR,22APR,29MAY,26JUN,25JUL,21AUG,18SEP,16OCT,15NOV,14DEC08
     Route: 042
     Dates: start: 20070613
  4. MICARDIS [Concomitant]
  5. NORVASC [Concomitant]
  6. ATROVENT [Concomitant]
  7. HYDRODIURIL [Concomitant]
  8. PROTOPIC [Concomitant]
     Dosage: PROTOPIC 0.1%
  9. HYDROMORPHONE HCL [Concomitant]
  10. MENOSENSE [Suspect]
     Indication: MENOPAUSAL SYMPTOMS
  11. DALMANE [Concomitant]
  12. DILAUDID [Concomitant]
  13. TRILEPTAL [Concomitant]
  14. PLAQUENIL [Concomitant]
     Dosage: 1 TAB ALTERNATE WITH 2 TABS DAILY.
  15. FUCIDINE CAP [Concomitant]
     Dosage: FUCIDIN HC
  16. FLOVENT [Concomitant]
  17. IMURAN [Concomitant]
  18. FLEXERIL [Concomitant]
  19. VENTOLIN [Concomitant]
  20. PULMICORT [Concomitant]
  21. ATARAX [Concomitant]
  22. MS CONTIN [Concomitant]
  23. ORENCIA [Suspect]
     Indication: JUVENILE ARTHRITIS
     Dosage: 13,27JUN,4OCT,1,29NOV07,3,31JAN,1,27MAR,22APR,29MAY,26JUN,25JUL,21AUG,18SEP,16OCT,15NOV,14DEC08
     Route: 042
     Dates: start: 20070613
  24. ORENCIA [Suspect]
     Indication: POLYARTHRITIS
     Dosage: 13,27JUN,4OCT,1,29NOV07,3,31JAN,1,27MAR,22APR,29MAY,26JUN,25JUL,21AUG,18SEP,16OCT,15NOV,14DEC08
     Route: 042
     Dates: start: 20070613
  25. FOSAMAX [Concomitant]
  26. NEXIUM [Concomitant]
  27. TRAZODONE HCL [Concomitant]
  28. SEROQUEL [Concomitant]
  29. ALDARA [Concomitant]

REACTIONS (10)
  - WEIGHT DECREASED [None]
  - PNEUMONIA [None]
  - RASH [None]
  - THERAPEUTIC RESPONSE DECREASED [None]
  - PYODERMA GANGRENOSUM [None]
  - THIRST [None]
  - BLOOD SODIUM DECREASED [None]
  - ARTHRALGIA [None]
  - BASAL CELL CARCINOMA [None]
  - JOINT SWELLING [None]
